FAERS Safety Report 4916499-8 (Version None)
Quarter: 2006Q1

REPORT INFORMATION
  Report Type: 
  Country: None (occurrence: None)
  Receive Date: 20060220
  Receipt Date: 20060213
  Transmission Date: 20060701
  Serious: Yes (Death)
  Sender: FDA-Public Use
  Company Number: PHHO2006US02667

PATIENT
  Age: 59 Year
  Sex: Male
  Weight: 77.5 kg

DRUGS (5)
  1. ZOLEDRONATE [Suspect]
     Indication: METASTASES TO BONE
     Dosage: 4 MG, UNK
     Route: 042
     Dates: start: 20051212
  2. TAXOTERE [Suspect]
     Indication: NON-SMALL CELL LUNG CANCER
     Dosage: UNK, UNK
     Dates: start: 20051212
  3. CARBOPLATIN [Suspect]
     Indication: NON-SMALL CELL LUNG CANCER
     Dosage: UNK, UNK
     Dates: start: 20051212
  4. VITAMIN D [Concomitant]
     Indication: METASTASES TO BONE
  5. CALCIUM GLUCONATE [Concomitant]
     Indication: METASTASES TO BONE

REACTIONS (1)
  - CARDIAC ARREST [None]
